FAERS Safety Report 7772509-4 (Version None)
Quarter: 2011Q3

REPORT INFORMATION
  Report Type: 
  Country: None (occurrence: None)
  Receive Date: 20110922
  Receipt Date: 20101216
  Transmission Date: 20111222
  Serious: No
  Sender: FDA-Public Use
  Company Number: US-ASTRAZENECA-2010SE54600

PATIENT
  Age: 21673 Day
  Sex: Female
  Weight: 82.1 kg

DRUGS (2)
  1. OTHER MEDS [Concomitant]
  2. SEROQUEL [Suspect]
     Indication: BIPOLAR DISORDER
     Route: 048
     Dates: start: 20101115

REACTIONS (11)
  - PHOBIC AVOIDANCE [None]
  - ABASIA [None]
  - DIZZINESS [None]
  - LETHARGY [None]
  - MENTAL IMPAIRMENT [None]
  - FEELING ABNORMAL [None]
  - BLINDNESS [None]
  - DEPRESSION [None]
  - INSOMNIA [None]
  - DIPLOPIA [None]
  - SOMNOLENCE [None]
